FAERS Safety Report 7770003-8 (Version None)
Quarter: 2011Q3

REPORT INFORMATION
  Report Type: 
  Country: None (occurrence: None)
  Receive Date: 20110922
  Receipt Date: 20110127
  Transmission Date: 20111222
  Serious: No
  Sender: FDA-Public Use
  Company Number: US-ASTRAZENECA-2011SE05098

PATIENT
  Age: 402 Month
  Sex: Female

DRUGS (6)
  1. SEROQUEL [Suspect]
     Dosage: 300-400 MG
     Route: 048
     Dates: start: 20060829
  2. KETOROLAC TROMETHAMINE [Concomitant]
     Dates: start: 20070501
  3. LAMICTAL [Concomitant]
     Dosage: 150-200 MG
     Dates: start: 20060829
  4. TOPAMAX [Concomitant]
     Dates: start: 20061019
  5. METFORMIN HCL [Concomitant]
     Dates: start: 20070223
  6. PREVACID [Concomitant]
     Dates: start: 20061116

REACTIONS (5)
  - HYPOAESTHESIA [None]
  - METABOLIC SYNDROME [None]
  - BACK PAIN [None]
  - MIGRAINE [None]
  - INTERVERTEBRAL DISC PROTRUSION [None]
